FAERS Safety Report 6527830-4 (Version None)
Quarter: 2010Q1

REPORT INFORMATION
  Report Type: 
  Country: None (occurrence: None)
  Receive Date: 20100105
  Receipt Date: 20100105
  Transmission Date: 20100710
  Serious: Yes (Other)
  Sender: FDA-Public Use
  Company Number: None

PATIENT
  Age: 54 Year
  Sex: Male
  Weight: 98.8842 kg

DRUGS (2)
  1. MUCINEX DM [Suspect]
     Indication: COUGH
     Dosage: ONE DOSE
     Dates: start: 20091231, end: 20091231
  2. MUCINEX DM [Suspect]
     Indication: NASOPHARYNGITIS
     Dosage: ONE DOSE
     Dates: start: 20091231, end: 20091231

REACTIONS (7)
  - BLOOD PRESSURE SYSTOLIC INCREASED [None]
  - COAGULOPATHY [None]
  - FEELING HOT [None]
  - HAEMORRHAGE [None]
  - PRURITUS [None]
  - SCRATCH [None]
  - UNEVALUABLE EVENT [None]
